FAERS Safety Report 13988922 (Version 5)
Quarter: 2019Q1

REPORT INFORMATION
  Report Type: Report from Study
  Country: JP (occurrence: JP)
  Receive Date: 20170919
  Receipt Date: 20190325
  Transmission Date: 20190417
  Serious: Yes (Hospitalization, Other)
  Sender: FDA-Public Use
  Company Number: JP-TAKEDA-2017TJP019216

PATIENT
  Age: 74 Year
  Sex: Male
  Weight: 55.5 kg

DRUGS (10)
  1. LENALIDOMIDE [Suspect]
     Active Substance: LENALIDOMIDE
     Indication: PLASMA CELL MYELOMA
     Dosage: 10 MG, QD
     Route: 048
     Dates: start: 20170616, end: 20170706
  2. LENALIDOMIDE [Suspect]
     Active Substance: LENALIDOMIDE
     Dosage: 5 MG, QD
     Route: 048
     Dates: start: 20171103
  3. LENALIDOMIDE [Suspect]
     Active Substance: LENALIDOMIDE
     Dosage: 5 MG, QD
     Route: 048
     Dates: start: 20170714, end: 20170928
  4. ACICLOVIR [Concomitant]
     Active Substance: ACYCLOVIR
     Indication: PROPHYLAXIS
     Dosage: UNK
     Route: 065
  5. DEXAMETHASONE. [Suspect]
     Active Substance: DEXAMETHASONE
     Dosage: 20 MG, 1/WEEK
     Route: 048
     Dates: start: 20171103
  6. IXAZOMIB [Suspect]
     Active Substance: IXAZOMIB
     Indication: PLASMA CELL MYELOMA
     Dosage: 3 MG, 1/WEEK
     Route: 048
     Dates: start: 20170616, end: 20170922
  7. DEXAMETHASONE. [Suspect]
     Active Substance: DEXAMETHASONE
     Dosage: 20 MG, 1/WEEK
     Route: 048
     Dates: start: 20170714, end: 20170929
  8. BAYASPIRIN [Concomitant]
     Active Substance: ASPIRIN
     Dosage: UNK
     Route: 065
  9. IXAZOMIB [Suspect]
     Active Substance: IXAZOMIB
     Dosage: 3 MG, 1/WEEK
     Route: 048
     Dates: start: 20171103
  10. DEXAMETHASONE. [Suspect]
     Active Substance: DEXAMETHASONE
     Indication: PLASMA CELL MYELOMA
     Dosage: 40 MG, 1/WEEK
     Route: 048
     Dates: start: 20170616, end: 20170707

REACTIONS (11)
  - Aspartate aminotransferase increased [Recovered/Resolved]
  - Thrombocytopenia [Recovered/Resolved]
  - Alanine aminotransferase increased [Recovered/Resolved]
  - Alanine aminotransferase increased [Recovered/Resolved]
  - Thrombocytopenia [Recovered/Resolved]
  - Fracture [Recovered/Resolved]
  - Fall [Unknown]
  - Thrombocytopenia [Recovered/Resolved]
  - Myocardial infarction [Recovered/Resolved]
  - Aspartate aminotransferase increased [Recovered/Resolved]
  - Thrombocytopenia [Recovered/Resolved]

NARRATIVE: CASE EVENT DATE: 20170629
